FAERS Safety Report 7055712-0 (Version None)
Quarter: 2010Q4

REPORT INFORMATION
  Report Type: 
  Country: None (occurrence: None)
  Receive Date: 20101021
  Receipt Date: 20100910
  Transmission Date: 20110411
  Serious: Yes (Other)
  Sender: FDA-Public Use
  Company Number: PT-ROCHE-716834

PATIENT
  Sex: Female
  Weight: 73.5 kg

DRUGS (10)
  1. BONIVA [Suspect]
     Indication: OSTEOPOROSIS
     Route: 048
     Dates: start: 20090901, end: 20091001
  2. JANUVIA [Concomitant]
     Route: 048
     Dates: start: 20090801
  3. LISINOPRIL [Concomitant]
     Indication: HYPERTENSION
     Route: 048
     Dates: start: 20030101
  4. LEVOTHYROXINE [Concomitant]
     Indication: HYPOTHYROIDISM
     Route: 048
     Dates: start: 20060101
  5. VASTAREL [Concomitant]
     Indication: VERTIGO
     Route: 048
     Dates: start: 20050101
  6. SIMVASTATIN [Concomitant]
     Dosage: DRUG REPORTED AS SINVASTATIN.
     Route: 048
     Dates: start: 20060101
  7. BETASERC [Concomitant]
     Indication: VERTIGO
     Route: 048
     Dates: start: 20050101
  8. FLUTICASONE PROPIONATE [Concomitant]
     Dosage: DOSE: 250.
     Route: 055
     Dates: start: 20030101
  9. CALCITAB [Concomitant]
     Indication: OSTEOPOROSIS
     Route: 048
     Dates: start: 20090101
  10. OMEPRAZOLE [Concomitant]
     Indication: PROPHYLAXIS
     Route: 048
     Dates: start: 20030101

REACTIONS (2)
  - OEDEMA [None]
  - PAIN IN EXTREMITY [None]
